FAERS Safety Report 11751158 (Version 1)
Quarter: 2015Q4

REPORT INFORMATION
  Report Type: Spontaneous
  Country: IT (occurrence: IT)
  Receive Date: 20151118
  Receipt Date: 20151118
  Transmission Date: 20160304
  Serious: Yes (Other)
  Sender: FDA-Public Use
  Company Number: IT-ELI_LILLY_AND_COMPANY-IT201511002382

PATIENT
  Sex: Male

DRUGS (1)
  1. FORSTEO [Suspect]
     Active Substance: TERIPARATIDE
     Indication: SPINAL COMPRESSION FRACTURE
     Dosage: UNK, UNKNOWN
     Route: 065

REACTIONS (10)
  - Fall [Unknown]
  - Haemorrhage [Unknown]
  - Dry skin [Unknown]
  - Incontinence [Unknown]
  - Skin exfoliation [Unknown]
  - Pruritus genital [Unknown]
  - Middle insomnia [Unknown]
  - Ankle fracture [Unknown]
  - Pruritus generalised [Not Recovered/Not Resolved]
  - Off label use [Unknown]

NARRATIVE: CASE EVENT DATE: 20151020
